FAERS Safety Report 20430548 (Version 1)
Quarter: 2022Q1

REPORT INFORMATION
  Report Type: Report from Study
  Country: US (occurrence: US)
  Receive Date: 20220204
  Receipt Date: 20220204
  Transmission Date: 20220423
  Serious: Yes (Hospitalization)
  Sender: FDA-Public Use
  Company Number: 2020415899

PATIENT

DRUGS (9)
  1. PEGASPARGASE [Suspect]
     Active Substance: PEGASPARGASE
     Indication: Acute lymphocytic leukaemia
     Dosage: 3750 IU, D15, ONE DOSE
     Route: 042
     Dates: start: 20201021, end: 20201021
  2. CYCLOPHOSPHAMIDE [Suspect]
     Active Substance: CYCLOPHOSPHAMIDE
     Indication: B precursor type acute leukaemia
     Dosage: 2210 MG, ONE DOSE
     Route: 065
     Dates: start: 20201007, end: 20201007
  3. CYTARABINE [Suspect]
     Active Substance: CYTARABINE
     Indication: B precursor type acute leukaemia
     Dosage: 1328 MG, TOTAL DOSE FOR DURATION OF REGIMEN
     Route: 065
     Dates: start: 20201007, end: 20201017
  4. MERCAPTOPURINE [Suspect]
     Active Substance: MERCAPTOPURINE
     Indication: B precursor type acute leukaemia
     Dosage: 1750 MG, TOTAL DOSE FOR DURATION OF REGIMEN
     Route: 065
     Dates: start: 20201007, end: 20201020
  5. METHOTREXATE SODIUM [Suspect]
     Active Substance: METHOTREXATE SODIUM
     Indication: B precursor type acute leukaemia
     Dosage: 45 MG, TOTAL DOSE FOR DURATION OF REGIMEN
     Route: 037
     Dates: start: 20201006, end: 20201021
  6. METHOTREXATE SODIUM [Suspect]
     Active Substance: METHOTREXATE SODIUM
     Dosage: 221 MG (COURSE 3 DAY 1)
     Route: 042
     Dates: start: 20201209, end: 20201209
  7. METHOTREXATE SODIUM [Suspect]
     Active Substance: METHOTREXATE SODIUM
     Dosage: 15 MG (COURSE 3 DAY 1)
     Route: 037
     Dates: start: 20201209, end: 20201209
  8. VINCRISTINE SULFATE [Suspect]
     Active Substance: VINCRISTINE SULFATE
     Indication: B precursor type acute leukaemia
     Dosage: 2 MG, ONE DOSE
     Route: 065
     Dates: start: 20201021, end: 20201021
  9. VINCRISTINE SULFATE [Suspect]
     Active Substance: VINCRISTINE SULFATE
     Dosage: UNK
     Route: 042
     Dates: start: 20201209, end: 20201209

REACTIONS (1)
  - Leukoencephalopathy [Recovered/Resolved]

NARRATIVE: CASE EVENT DATE: 20201022
